FAERS Safety Report 11107164 (Version 3)
Quarter: 2015Q2

REPORT INFORMATION
  Report Type: Other
  Country: FR (occurrence: FR)
  Receive Date: 20150512
  Receipt Date: 20150602
  Transmission Date: 20150821
  Serious: Yes (Hospitalization)
  Sender: FDA-Public Use
  Company Number: FR-SYMPLMED PHARMACEUTICALS-2015SYMPLMED000015

PATIENT

DRUGS (2)
  1. IRBESARTAN EG [Suspect]
     Active Substance: IRBESARTAN
     Indication: HYPERTENSION
     Dosage: 300 MG, QD
     Route: 048
     Dates: start: 20141203, end: 20150115
  2. COVERAM [Suspect]
     Active Substance: AMLODIPINE\PERINDOPRIL
     Indication: HYPERTENSION
     Dosage: 5/5MG TABLET, ONCE DAILY
     Route: 048
     Dates: start: 20140814, end: 20141203

REACTIONS (1)
  - Dyshidrotic eczema [Recovered/Resolved with Sequelae]

NARRATIVE: CASE EVENT DATE: 20140905
